FAERS Safety Report 4737442-0 (Version None)
Quarter: 2005Q3

REPORT INFORMATION
  Report Type: 
  Country: None (occurrence: None)
  Receive Date: 20050803
  Receipt Date: 20050713
  Transmission Date: 20060218
  Serious: Yes (Other)
  Sender: FDA-Public Use
  Company Number: GBS050617646

PATIENT
  Age: 70 Year
  Sex: Female
  Weight: 65 kg

DRUGS (13)
  1. XIGRIS [Suspect]
     Indication: MULTI-ORGAN FAILURE
     Dosage: 24 UG/KG/HR
     Dates: start: 20050609, end: 20050614
  2. XIGRIS [Suspect]
     Indication: SEPSIS
     Dosage: 24 UG/KG/HR
     Dates: start: 20050609, end: 20050614
  3. MIDAZOLAM HYDROCHLORIDE [Concomitant]
  4. MORPHINE [Concomitant]
  5. PARACETAMOL [Concomitant]
  6. ACETYLCYSTEINE [Concomitant]
  7. SALINE (SODIUM CHLORIDE) [Concomitant]
  8. BENZYLPENICILLIN [Concomitant]
  9. FLUCLOXACILLIN [Concomitant]
  10. METOCLOPRAMIDE [Concomitant]
  11. RANITIDINE [Concomitant]
  12. PROPOFOL [Concomitant]
  13. ROCURONIUM [Concomitant]

REACTIONS (1)
  - THROMBOCYTOPENIA [None]
